FAERS Safety Report 5953710-9 (Version None)
Quarter: 2008Q4

REPORT INFORMATION
  Report Type: 
  Country: None (occurrence: None)
  Receive Date: 20081114
  Receipt Date: 20080915
  Transmission Date: 20090506
  Serious: Yes (Hospitalization)
  Sender: FDA-Public Use
  Company Number: US-JNJFOC-20081102954

PATIENT
  Sex: Female

DRUGS (9)
  1. CYCLOBENZAPRINE HCL [Suspect]
     Indication: BACK PAIN
  2. AMITRIPTYLINE HCL [Interacting]
     Indication: DRUG USE FOR UNKNOWN INDICATION
     Dosage: UP TO 150 MG AT BEDTIME
     Route: 048
  3. XANAX [Interacting]
     Indication: ANXIETY
  4. PROZAC [Interacting]
     Indication: DRUG USE FOR UNKNOWN INDICATION
  5. INHALERS [Concomitant]
     Route: 055
  6. OMEPRAZOLE [Concomitant]
  7. DONNATAL [Concomitant]
  8. VALTREX [Concomitant]
  9. DIGOXIN [Concomitant]

REACTIONS (2)
  - DRUG INTERACTION [None]
  - VERTIGO POSITIONAL [None]
